FAERS Safety Report 7940902-2 (Version None)
Quarter: 2011Q4

REPORT INFORMATION
  Report Type: 
  Country: None (occurrence: None)
  Receive Date: 20111114
  Receipt Date: 20111003
  Transmission Date: 20120403
  Serious: Yes (Hospitalization)
  Sender: FDA-Public Use
  Company Number: 1000024435

PATIENT
  Age: 55 Year
  Sex: Female
  Weight: 64.55 kg

DRUGS (2)
  1. SAVELLA [Suspect]
     Indication: FIBROMYALGIA
  2. SAVELLA [Suspect]
     Indication: FIBROMYALGIA
     Dosage: 50 MG BID (50 MG,2 IN 1 D)
     Dates: start: 20101001, end: 20101001

REACTIONS (14)
  - THERAPY CESSATION [None]
  - FEELING ABNORMAL [None]
  - VOMITING [None]
  - HEADACHE [None]
  - DEPRESSION [None]
  - ANXIETY [None]
  - SCREAMING [None]
  - UNEVALUABLE EVENT [None]
  - PALPITATIONS [None]
  - SUICIDAL IDEATION [None]
  - MEMORY IMPAIRMENT [None]
  - NIGHTMARE [None]
  - CRYING [None]
  - NAUSEA [None]
